FAERS Safety Report 23590770 (Version 1)
Quarter: 2024Q1

REPORT INFORMATION
  Report Type: Spontaneous
  Country: US (occurrence: US)
  Receive Date: 20240304
  Receipt Date: 20240304
  Transmission Date: 20240409
  Serious: No
  Sender: FDA-Public Use
  Company Number: US-BRISTOL-MYERS SQUIBB COMPANY-2024-032544

PATIENT
  Age: 75 Year
  Sex: Male

DRUGS (1)
  1. SPRYCEL [Suspect]
     Active Substance: DASATINIB
     Indication: Chronic myeloid leukaemia
     Dates: start: 2021

REACTIONS (5)
  - Tooth disorder [Unknown]
  - Skin laceration [Unknown]
  - Coagulation time prolonged [Unknown]
  - Post procedural haemorrhage [Unknown]
  - Haemorrhage [Unknown]
